FAERS Safety Report 8855712 (Version 1)
Quarter: 2012Q4

REPORT INFORMATION
  Report Type: Spontaneous
  Country: US (occurrence: None)
  Receive Date: 20121019
  Receipt Date: 20121019
  Transmission Date: 20130627
  Serious: Yes (Death, Life-Threatening, Hospitalization, Disabling)
  Sender: FDA-Public Use
  Company Number: None

PATIENT
  Age: 91 Year
  Sex: Male
  Weight: 75 kg

DRUGS (14)
  1. DAPTOMYCIN [Suspect]
     Indication: STAPHYLOCOCCAL BACTERAEMIA
     Dosage: 8 MG/KG Q24H IV
     Route: 042
     Dates: start: 20120812, end: 20120921
  2. DAPTOMYCIN [Suspect]
     Indication: DEVICE RELATED INFECTION
     Dosage: 8 MG/KG Q24H IV
     Route: 042
     Dates: start: 20120812, end: 20120921
  3. AMIODARONE [Suspect]
     Indication: ATRIAL FIBRILLATION
     Dosage: 200 MG BID PO
     Route: 048
     Dates: end: 20120921
  4. PHYTONADIONE [Concomitant]
  5. MAGNESIUM SULFATE [Concomitant]
  6. METHYLPREDNISOLONE SODIUM SUCCINATE (SOLU-MEDROL) [Concomitant]
  7. ACETAMINOPHEN [Concomitant]
  8. CITALOPRAM [Concomitant]
  9. DOCUSATE-SENNA [Concomitant]
  10. HYDRALAZINE [Concomitant]
  11. ATORVASTATIN [Concomitant]
  12. POTASSIUM CHLORIDE [Concomitant]
  13. TRAZODONE [Concomitant]
  14. NITROGLYCERIN [Concomitant]

REACTIONS (12)
  - Endocarditis [None]
  - Medical device complication [None]
  - Oedema [None]
  - Oedema peripheral [None]
  - Wheezing [None]
  - Acute respiratory failure [None]
  - Dizziness [None]
  - Syncope [None]
  - Pulmonary oedema [None]
  - Fatigue [None]
  - Lung infiltration [None]
  - Pulmonary toxicity [None]
